FAERS Safety Report 9773016 (Version 1)
Quarter: 2013Q4

REPORT INFORMATION
  Report Type: Spontaneous
  Country: GB (occurrence: None)
  Receive Date: 20131217
  Receipt Date: 20131217
  Transmission Date: 20140711
  Serious: Yes (Other)
  Sender: FDA-Public Use
  Company Number: GB-DEXPHARM-20131143

PATIENT
  Age: 64 Year
  Sex: Female

DRUGS (2)
  1. OMEPRAZOLE (OMEPRAZOLE) [Suspect]
     Indication: GASTROOESOPHAGEAL REFLUX DISEASE
     Dosage: 10MG SEP. DOSAGES/INTERVAL 1 IN 1 DAYS CUMULATIVE DOSE 10 MG MILLIGRAMS
     Route: 048
     Dates: start: 20131101, end: 20131106
  2. GAVISCON [Concomitant]

REACTIONS (3)
  - Abdominal discomfort [None]
  - Urine flow decreased [None]
  - Abdominal pain [None]
